FAERS Safety Report 15499365 (Version 1)
Quarter: 2018Q4

REPORT INFORMATION
  Report Type: Spontaneous
  Country: BR (occurrence: BR)
  Receive Date: 20181015
  Receipt Date: 20181015
  Transmission Date: 20190205
  Serious: Yes (Other)
  Sender: FDA-Public Use
  Company Number: BR-GLAXOSMITHKLINE-BR2017204407

PATIENT
  Sex: Male

DRUGS (9)
  1. DICLOFENAC [Suspect]
     Active Substance: DICLOFENAC
     Indication: PAIN
     Dosage: 1 DF, Q12H
     Route: 065
  2. BETAHISTINE MESILATE [Suspect]
     Active Substance: BETAHISTINE MESILATE
     Indication: PRODUCT USED FOR UNKNOWN INDICATION
     Dosage: UNK
     Route: 065
  3. DICLOFENAC [Suspect]
     Active Substance: DICLOFENAC
     Indication: BREAST PAIN
  4. FINASTERIDE. [Suspect]
     Active Substance: FINASTERIDE
     Indication: SWELLING
     Dosage: 1 DF, QD
     Route: 065
  5. LOSARTAN. [Suspect]
     Active Substance: LOSARTAN
     Indication: HYPERTENSION
     Dosage: 2 DF, QD
     Route: 065
  6. MACRODANTIN [Suspect]
     Active Substance: NITROFURANTOIN
     Indication: INFECTION
     Dosage: 100 MG, QD
     Route: 065
  7. ALDACTONE [Suspect]
     Active Substance: SPIRONOLACTONE
     Indication: PRODUCT USED FOR UNKNOWN INDICATION
     Dosage: 25 MG, QD
     Route: 065
  8. ELIQUIS [Suspect]
     Active Substance: APIXABAN
     Indication: BLOOD DISORDER
     Dosage: 2 DF, QD
     Route: 065
  9. MODURETIC 5-50 [Suspect]
     Active Substance: AMILORIDE HYDROCHLORIDE\HYDROCHLOROTHIAZIDE
     Indication: POLYURIA
     Dosage: 2.25 MG, UNK HALF TABLET DAILY
     Route: 065

REACTIONS (4)
  - Drug ineffective [Unknown]
  - Swelling [Unknown]
  - Aortic disorder [Unknown]
  - Prostatic disorder [Unknown]
